FAERS Safety Report 6245072-7 (Version None)
Quarter: 2009Q2

REPORT INFORMATION
  Report Type: 
  Country: None (occurrence: None)
  Receive Date: 20090625
  Receipt Date: 20090615
  Transmission Date: 20091009
  Serious: Yes (Hospitalization, Other)
  Sender: FDA-Public Use
  Company Number: CH-ELI_LILLY_AND_COMPANY-CH200906001482

PATIENT
  Age: 55 Year
  Sex: Male

DRUGS (6)
  1. ZYPREXA [Suspect]
     Indication: DEMENTIA
     Dosage: 15 MG, DAILY (1/D)
     Route: 048
     Dates: start: 20070101
  2. TIMONIL [Interacting]
     Indication: EPILEPSY
     Dosage: 1200 MG, DAILY (1/D)
     Route: 048
     Dates: end: 20090427
  3. TIMONIL [Interacting]
     Dosage: 1000 MG, DAILY (1/D)
     Route: 048
     Dates: start: 20090428
  4. NEBILET [Concomitant]
     Indication: HYPERTENSION
     Dosage: 5 MG, DAILY (1/D)
     Route: 048
     Dates: start: 20051001
  5. SERESTA [Concomitant]
     Indication: SLEEP DISORDER
     Dosage: 15 MG, DAILY (1/D)
     Route: 048
     Dates: end: 20090420
  6. SERESTA [Concomitant]
     Dosage: 7.5 MG, DAILY (1/D)
     Route: 048
     Dates: start: 20090421, end: 20090424

REACTIONS (4)
  - DRUG INTERACTION [None]
  - HYPONATRAEMIA [None]
  - OFF LABEL USE [None]
  - SUICIDE ATTEMPT [None]
